FAERS Safety Report 11751524 (Version 4)
Quarter: 2019Q2

REPORT INFORMATION
  Report Type: Spontaneous
  Country: US (occurrence: US)
  Receive Date: 20151118
  Receipt Date: 20190417
  Transmission Date: 20190711
  Serious: No
  Sender: FDA-Public Use
  Company Number: US-PFIZER INC-2015391063

PATIENT
  Age: 66 Year
  Sex: Female
  Weight: 86 kg

DRUGS (27)
  1. PRISTIQ EXTENDED-RELEASE [Suspect]
     Active Substance: DESVENLAFAXINE SUCCINATE
     Indication: CEREBROVASCULAR ACCIDENT
     Dosage: 50 MG, 1X/DAY
     Route: 048
     Dates: start: 2005
  2. BUPROPION. [Concomitant]
     Active Substance: BUPROPION
     Dosage: 200 MG, 2X/DAY, IN THE MORNING AND AT NIGHT
     Route: 048
  3. RITALIN [Concomitant]
     Active Substance: METHYLPHENIDATE HYDROCHLORIDE
     Indication: CEREBROVASCULAR ACCIDENT
     Dosage: 10 MG, 2X/DAY
  4. VITAMIN B12 [Concomitant]
     Active Substance: CYANOCOBALAMIN
     Dosage: UNK
  5. MIRALAX [Concomitant]
     Active Substance: POLYETHYLENE GLYCOL 3350
     Dosage: 1 DF, DAILY
  6. HYDROCODONE-ACETAMINOPHEN [Concomitant]
     Active Substance: ACETAMINOPHEN\HYDROCODONE
     Indication: PAIN
     Dosage: UNK (HYDROCODONE:5; ACETAMINOPHEN:325)
  7. PB8 [Concomitant]
     Dosage: UNK
  8. PROGESTERONE. [Concomitant]
     Active Substance: PROGESTERONE
     Indication: HOT FLUSH
     Dosage: 100 MG, 1X/DAY
     Route: 048
  9. METHYLPHENIDATE. [Concomitant]
     Active Substance: METHYLPHENIDATE
     Indication: ATTENTION DEFICIT/HYPERACTIVITY DISORDER
     Dosage: 10 MG PILL BY MOUTH ONE IN AM AND 1/2 IN AFTERNOON
     Route: 048
     Dates: start: 2015
  10. WELLBUTRIN [Concomitant]
     Active Substance: BUPROPION HYDROCHLORIDE
     Indication: CEREBROVASCULAR ACCIDENT
     Dosage: 200 MG, 2X/DAY (AM AND PM)
  11. OMEGA 3 FISH OILS [Concomitant]
     Active Substance: OMEGA-3 FATTY ACIDS
     Dosage: 120 MG, 4X/DAY
  12. VITEYES [Concomitant]
     Dosage: UNK
  13. SINGULAIR [Concomitant]
     Active Substance: MONTELUKAST SODIUM
     Indication: HYPERSENSITIVITY
     Dosage: 10 MG, 1X/DAY (AT NIGHT)
  14. ONDANSETRON HCL [Concomitant]
     Active Substance: ONDANSETRON HYDROCHLORIDE
     Indication: VOMITING
     Dosage: 8 MG, UNK
  15. CALCIUM + MAGNESIUM [Concomitant]
     Dosage: UNK (CALCIUM: 1000MG/MAGNESIUM: 500 MG; 400 I.UD3)
  16. PRISTIQ EXTENDED-RELEASE [Suspect]
     Active Substance: DESVENLAFAXINE SUCCINATE
     Indication: ASTHENIA
     Dosage: 100 MG, 1X/DAY (AM)
     Route: 048
  17. TRAZODONE [Concomitant]
     Active Substance: TRAZODONE HYDROCHLORIDE
     Indication: INSOMNIA
     Dosage: 1X/DAY, 50MG TABLET BY MOUTH 3-4 TABLETS AT NIGHT
     Route: 048
  18. TRAZODONE [Concomitant]
     Active Substance: TRAZODONE HYDROCHLORIDE
     Dosage: 100 MG, 1X/DAY (BEDTIME)
  19. FLUTICASONE PROPIONATE. [Concomitant]
     Active Substance: FLUTICASONE PROPIONATE
     Dosage: 50 UG, UNK
  20. ALIVE [Concomitant]
     Dosage: UNK UNK, 1X/DAY
  21. COLLAGEN HYDROLYSATE [Concomitant]
     Dosage: UNK
  22. ARMOUR THYROID [Concomitant]
     Active Substance: THYROID, PORCINE
     Indication: THYROID DISORDER
     Dosage: 60 MG, 1X/DAY (IN THE MORNING AM )
     Route: 048
  23. FLUTICASONE. [Concomitant]
     Active Substance: FLUTICASONE
     Indication: NASAL CONGESTION
     Dosage: 50 UG, AS NEEDED
     Route: 045
  24. MUPIROCIN. [Concomitant]
     Active Substance: MUPIROCIN
     Indication: NASAL CONGESTION
     Dosage: 2% OINTMENT PUT FIFTH OF TUBE IN SALINE SOLUTION
  25. PRISTIQ EXTENDED-RELEASE [Suspect]
     Active Substance: DESVENLAFAXINE SUCCINATE
     Dosage: UNK
     Route: 048
  26. ALOE VERA [Concomitant]
     Active Substance: ALOE VERA LEAF
     Dosage: UNK
  27. BABY ASPIRIN [Concomitant]
     Active Substance: ASPIRIN
     Dosage: UNK, 1X/DAY

REACTIONS (1)
  - Drug tolerance [Unknown]
